FAERS Safety Report 8361863-0 (Version None)
Quarter: 2012Q2

REPORT INFORMATION
  Report Type: 
  Country: None (occurrence: None)
  Receive Date: 20120515
  Receipt Date: 20120501
  Transmission Date: 20120825
  Serious: Yes (Hospitalization, Other)
  Sender: FDA-Public Use
  Company Number: US-BAXTER-2012BH004187

PATIENT
  Age: 82 Year
  Sex: Male
  Weight: 70 kg

DRUGS (1)
  1. GAMMAGARD S/D [Suspect]
     Indication: PRIMARY IMMUNODEFICIENCY SYNDROME
     Route: 065

REACTIONS (6)
  - HYPOTENSION [None]
  - DYSPNOEA [None]
  - HYPOXIA [None]
  - PNEUMONIA [None]
  - CHILLS [None]
  - ATRIAL FIBRILLATION [None]
